FAERS Safety Report 22736238 (Version 3)
Quarter: 2024Q3

REPORT INFORMATION
  Report Type: Spontaneous
  Country: US (occurrence: US)
  Receive Date: 20230721
  Receipt Date: 20240726
  Transmission Date: 20241017
  Serious: Yes (Hospitalization)
  Sender: SANOFI AVENTIS
  Company Number: US-SA-SAC20230719000767

PATIENT
  Age: 16 Year
  Sex: Male

DRUGS (4)
  1. ELOCTATE [Suspect]
     Active Substance: EFMOROCTOCOG ALFA
     Dosage: 3125 U
     Route: 042
  2. ELOCTATE [Suspect]
     Active Substance: EFMOROCTOCOG ALFA
     Dosage: 3125 U
     Route: 042
  3. ELOCTATE [Suspect]
     Active Substance: EFMOROCTOCOG ALFA
     Dosage: 3320  U, PRN
     Route: 042
  4. ELOCTATE [Suspect]
     Active Substance: EFMOROCTOCOG ALFA
     Dosage: 3320  U, PRN
     Route: 042

REACTIONS (6)
  - Post procedural haemorrhage [Unknown]
  - Tonsillectomy [Unknown]
  - Ear infection [Unknown]
  - Pharyngitis streptococcal [Unknown]
  - Nasopharyngitis [Unknown]
  - Wisdom teeth removal [Unknown]

NARRATIVE: CASE EVENT DATE: 20230629
